FAERS Safety Report 4531714-0 (Version None)
Quarter: 2004Q4

REPORT INFORMATION
  Report Type: 
  Country: None (occurrence: None)
  Receive Date: 20041216
  Receipt Date: 20041203
  Transmission Date: 20050328
  Serious: Yes (Other)
  Sender: FDA-Public Use
  Company Number: 2004069516

PATIENT
  Age: 17 Year
  Sex: Male
  Weight: 94.8018 kg

DRUGS (6)
  1. GEODON [Suspect]
     Indication: AFFECTIVE DISORDER
     Dosage: 200 MG 3 IN 1 D
     Dates: start: 20021201
  2. GEODON [Suspect]
     Indication: AGGRESSION
     Dosage: 200 MG 3 IN 1 D
     Dates: start: 20021201
  3. CLONIDINE [Concomitant]
  4. SERTRALINE HCL [Concomitant]
  5. OBETROL (AMFETAMINE ASPARTATE, AMFETAMINE SULFATE, DEXAMFETAMINE SACCH [Concomitant]
  6. TOPIRAMATE [Concomitant]

REACTIONS (4)
  - BLOOD TRIGLYCERIDES INCREASED [None]
  - BODY HEIGHT INCREASED [None]
  - DIABETES MELLITUS [None]
  - WEIGHT INCREASED [None]
